FAERS Safety Report 19722156 (Version 1)
Quarter: 2021Q3

REPORT INFORMATION
  Report Type: Other
  Country: GB (occurrence: GB)
  Receive Date: 20210818
  Receipt Date: 20210818
  Transmission Date: 20211014
  Serious: Yes (Other)
  Sender: FDA-Public Use
  Company Number: GB-CELLTRION INC.-2021GB011005

PATIENT

DRUGS (6)
  1. RITUXIMAB (UNKNOWN) [Suspect]
     Active Substance: RITUXIMAB
     Indication: DIFFUSE LARGE B-CELL LYMPHOMA RECURRENT
     Dosage: EVERY 6 CYCLES (DAY 1) (ADDITIONAL INFORMATION: R?CEOP)
     Route: 042
     Dates: start: 201808
  2. VINCRISTINE [Suspect]
     Active Substance: VINCRISTINE
     Indication: DIFFUSE LARGE B-CELL LYMPHOMA RECURRENT
     Dosage: 1.4 MG/M2 EVERY 6 CYCLES
     Route: 042
     Dates: start: 201808
  3. CYCLOPHOSPHAMIDE. [Suspect]
     Active Substance: CYCLOPHOSPHAMIDE
     Indication: DIFFUSE LARGE B-CELL LYMPHOMA RECURRENT
     Dosage: EVERY 6 CYCLES (DAY 1)
     Route: 042
  4. ETOPOSIDE. [Suspect]
     Active Substance: ETOPOSIDE
     Dosage: 200 MG/M2 EVERY 6 CYCLES (DAY 2 AND 3) (ADDITIONAL INFORMATION: R?CEOP; PHARMACEUTICAL DOSE FORM: 5)
     Route: 048
     Dates: start: 201808
  5. PREDNISOLONE. [Suspect]
     Active Substance: PREDNISOLONE
     Indication: DIFFUSE LARGE B-CELL LYMPHOMA RECURRENT
     Dosage: 500 MG EVERY 6 CYCLES (DAY 1?5)
     Route: 048
  6. ETOPOSIDE. [Suspect]
     Active Substance: ETOPOSIDE
     Indication: DIFFUSE LARGE B-CELL LYMPHOMA RECURRENT
     Dosage: 50 MG/M2 EVERY 6 CYCLES (DAY 1)
     Route: 042

REACTIONS (2)
  - Diffuse large B-cell lymphoma recurrent [Not Recovered/Not Resolved]
  - Necrotic lymphadenopathy [Not Recovered/Not Resolved]
